FAERS Safety Report 25446632 (Version 2)
Quarter: 2025Q4

REPORT INFORMATION
  Report Type: Spontaneous
  Country: US (occurrence: None)
  Receive Date: 20250617
  Receipt Date: 20251027
  Transmission Date: 20260117
  Serious: No
  Sender: UCB
  Company Number: US-UCBSA-2025028867

PATIENT

DRUGS (1)
  1. BIMZELX [Suspect]
     Active Substance: BIMEKIZUMAB-BKZX
     Indication: Product used for unknown indication

REACTIONS (6)
  - Sinusitis [Unknown]
  - Influenza [Unknown]
  - Leukocytosis [Unknown]
  - Infection [Unknown]
  - Urinary tract infection [Unknown]
  - Liver function test abnormal [Unknown]
